FAERS Safety Report 4304695-2 (Version None)
Quarter: 2004Q1

REPORT INFORMATION
  Report Type: 
  Country: None (occurrence: None)
  Receive Date: 20040226
  Receipt Date: 20031118
  Transmission Date: 20041129
  Serious: No
  Sender: FDA-Public Use
  Company Number: US-GLAXOSMITHKLINE-A0440208A

PATIENT
  Age: 72 Year
  Sex: Male

DRUGS (5)
  1. WELLBUTRIN [Suspect]
     Indication: DEPRESSION
     Dosage: 300MG PER DAY
     Route: 048
     Dates: start: 20031103
  2. VALTREX [Concomitant]
  3. AVANDIA [Concomitant]
  4. HYZAAR [Concomitant]
  5. DYAZIDE [Concomitant]

REACTIONS (1)
  - HYPERGLYCAEMIA [None]
